FAERS Safety Report 5023076-X (Version None)
Quarter: 2006Q2

REPORT INFORMATION
  Report Type: 
  Country: None (occurrence: None)
  Receive Date: 20060502
  Receipt Date: 20050811
  Transmission Date: 20061013
  Serious: Yes (Other)
  Sender: FDA-Public Use
  Company Number: PHEH2005US06422

PATIENT
  Age: 79 Year
  Sex: Female

DRUGS (1)
  1. LOTREL [Suspect]
     Indication: HYPERTENSION
     Dosage: 5 MG AML/10 MG BEN, DAILY, ORAL
     Route: 048
     Dates: start: 20040501, end: 20041113

REACTIONS (3)
  - DYSARTHRIA [None]
  - SWELLING FACE [None]
  - SWOLLEN TONGUE [None]
